FAERS Safety Report 11502814 (Version 1)
Quarter: 2015Q3

REPORT INFORMATION
  Report Type: Spontaneous
  Country: US (occurrence: US)
  Receive Date: 20150914
  Receipt Date: 20150914
  Transmission Date: 20151125
  Serious: No
  Sender: FDA-Public Use
  Company Number: US-ASTELLAS-2015US029146

PATIENT
  Age: 85 Year
  Sex: Male

DRUGS (2)
  1. XTANDI [Suspect]
     Active Substance: ENZALUTAMIDE
     Indication: PROSTATE CANCER
     Dosage: 160 MG (4X40 MG), ONCE DAILY
     Route: 065
     Dates: start: 20150714
  2. XTANDI [Suspect]
     Active Substance: ENZALUTAMIDE
     Indication: PROSTATIC SPECIFIC ANTIGEN INCREASED

REACTIONS (6)
  - Cough [Unknown]
  - Fatigue [Unknown]
  - Asthenia [Unknown]
  - Oropharyngeal pain [Unknown]
  - Hypersomnia [Unknown]
  - Pain [Unknown]

NARRATIVE: CASE EVENT DATE: 20150731
